FAERS Safety Report 11513079 (Version 1)
Quarter: 2015Q3

REPORT INFORMATION
  Report Type: Spontaneous
  Country: US (occurrence: None)
  Receive Date: 20150915
  Receipt Date: 20150915
  Transmission Date: 20151125
  Serious: No
  Sender: FDA-Public Use
  Company Number: None

PATIENT
  Age: 12 Year
  Sex: Male

DRUGS (1)
  1. BETHKIS [Suspect]
     Active Substance: TOBRAMYCIN
     Indication: CYSTIC FIBROSIS
     Route: 055
     Dates: start: 20150730, end: 20150914

REACTIONS (4)
  - Pharyngeal disorder [None]
  - Product substitution issue [None]
  - Aphonia [None]
  - Laryngitis [None]

NARRATIVE: CASE EVENT DATE: 20150914
